FAERS Safety Report 11512417 (Version 2)
Quarter: 2015Q3

REPORT INFORMATION
  Report Type: Spontaneous
  Country: US (occurrence: US)
  Receive Date: 20150916
  Receipt Date: 20150930
  Transmission Date: 20151125
  Serious: No
  Sender: FDA-Public Use
  Company Number: US-TORRENT-00000975

PATIENT
  Sex: Female
  Weight: 93 kg

DRUGS (1)
  1. DULOXETINE HYDROCHLORIDE- DULOXETINE HCL CAPS, DELAYED RELEASE [Suspect]
     Active Substance: DULOXETINE HYDROCHLORIDE
     Indication: PRODUCT USED FOR UNKNOWN INDICATION
     Dosage: 3 CAPSULES DAILY FOR THE LAST MONTH

REACTIONS (5)
  - Hyperhidrosis [Unknown]
  - Heart rate increased [Unknown]
  - Fatigue [Unknown]
  - Nausea [Unknown]
  - Drug dispensing error [Unknown]
